FAERS Safety Report 17300626 (Version 2)
Quarter: 2021Q1

REPORT INFORMATION
  Report Type: Spontaneous
  Country: US (occurrence: US)
  Receive Date: 20200122
  Receipt Date: 20210125
  Transmission Date: 20210419
  Serious: No
  Sender: FDA-Public Use
  Company Number: US-ALLERGAN-1948658US

PATIENT
  Age: 87 Year
  Sex: Female

DRUGS (3)
  1. UNSPECIFIED MEDICATIONS [Concomitant]
     Active Substance: UNSPECIFIED INGREDIENT
     Dosage: UNK
  2. RESTASIS [Suspect]
     Active Substance: CYCLOSPORINE
     Indication: DRY EYE
     Dosage: 2 GTT, BID
     Route: 047
     Dates: start: 2019
  3. RESTASIS [Suspect]
     Active Substance: CYCLOSPORINE
     Dosage: 1 GTT, EVERY 2 HOURS
     Route: 047
     Dates: start: 2019, end: 2019

REACTIONS (2)
  - Dry eye [Unknown]
  - Inappropriate schedule of product administration [Unknown]

NARRATIVE: CASE EVENT DATE: 2019
